FAERS Safety Report 18097356 (Version 1)
Quarter: 2020Q3

REPORT INFORMATION
  Report Type: Spontaneous
  Country: FR (occurrence: FR)
  Receive Date: 20200731
  Receipt Date: 20200731
  Transmission Date: 20201103
  Serious: Yes (Other)
  Sender: FDA-Public Use
  Company Number: FR-CADILA HEALTHCARE LIMITED-FR-ZYDUS-024248

PATIENT
  Age: 47 Year
  Sex: Male

DRUGS (2)
  1. PAROXETINE. [Suspect]
     Active Substance: PAROXETINE
     Indication: DEPRESSIVE SYMPTOM
     Dosage: 30 MILLIGRAM,(INTERVAL :1 DAYS)
     Route: 048
     Dates: start: 20180410
  2. CLOZAPINE. [Suspect]
     Active Substance: CLOZAPINE
     Indication: SCHIZOPHRENIA
     Dosage: 300 MILLIGRAM,(INTERVAL :1 DAYS)
     Route: 048
     Dates: start: 20180410

REACTIONS (1)
  - Tonic clonic movements [Recovering/Resolving]

NARRATIVE: CASE EVENT DATE: 20180504
